FAERS Safety Report 7964161-X (Version None)
Quarter: 2011Q4

REPORT INFORMATION
  Report Type: 
  Country: None (occurrence: None)
  Receive Date: 20111208
  Receipt Date: 20111205
  Transmission Date: 20120403
  Serious: Yes (Hospitalization)
  Sender: FDA-Public Use
  Company Number: DK-BRISTOL-MYERS SQUIBB COMPANY-14317481

PATIENT
  Age: 34 Year
  Sex: Female
  Weight: 66 kg

DRUGS (10)
  1. PANTOPRAZOLE SODIUM [Concomitant]
  2. POTASSIUM CHLORIDE [Concomitant]
  3. ACYCLOVIR [Concomitant]
  4. ALLOPURINOL [Concomitant]
  5. ETOPOSIDE [Suspect]
     Indication: ACUTE LEUKAEMIA IN REMISSION
  6. NOXAFIL [Suspect]
     Indication: CANDIDIASIS
     Dosage: MIXTURE
     Dates: start: 20071019
  7. VOGALENE [Concomitant]
  8. ONDANSETRON [Suspect]
     Indication: PROPHYLAXIS OF NAUSEA AND VOMITING
  9. CYTARABINE [Suspect]
     Indication: ACUTE LEUKAEMIA IN REMISSION
  10. DEXAMETHASONE [Concomitant]

REACTIONS (1)
  - SINOATRIAL BLOCK [None]
